FAERS Safety Report 9848621 (Version 1)
Quarter: 2014Q1

REPORT INFORMATION
  Report Type: Spontaneous
  Country: US (occurrence: None)
  Receive Date: 20140124
  Receipt Date: 20140124
  Transmission Date: 20141002
  Serious: Yes (Other)
  Sender: FDA-Public Use
  Company Number: None

PATIENT
  Age: 55 Year
  Sex: Male
  Weight: 105.87 kg

DRUGS (3)
  1. METOPROLOL ER [Suspect]
     Indication: HYPERTENSION
     Route: 048
  2. METOPROLOL ER [Suspect]
     Indication: CORONARY ARTERY DISEASE
     Route: 048
  3. TOPROL [Concomitant]

REACTIONS (2)
  - Palpitations [None]
  - Blood pressure increased [None]
